FAERS Safety Report 21244733 (Version 2)
Quarter: 2022Q3

REPORT INFORMATION
  Report Type: Spontaneous
  Country: DE (occurrence: DE)
  Receive Date: 20220823
  Receipt Date: 20220913
  Transmission Date: 20221026
  Serious: Yes (Other)
  Sender: FDA-Public Use
  Company Number: DE-ROCHE-2998827

PATIENT
  Age: 61 Year
  Sex: Female

DRUGS (7)
  1. VINORELBINE [Suspect]
     Active Substance: VINORELBINE TARTRATE
     Indication: Lung neoplasm malignant
     Dosage: IN COMBINATION WITH CISPLATIN
     Route: 065
     Dates: start: 201801, end: 201801
  2. VINORELBINE [Suspect]
     Active Substance: VINORELBINE TARTRATE
     Dosage: IN COMBINATION WITH CARBOPLATIN
     Route: 065
     Dates: start: 201801, end: 201801
  3. CISPLATIN [Suspect]
     Active Substance: CISPLATIN
     Indication: Lung neoplasm malignant
     Dosage: IN COMBINATION WITH VINORELBIN
     Route: 065
     Dates: start: 201801, end: 201901
  4. CARBOPLATIN [Suspect]
     Active Substance: CARBOPLATIN
     Indication: Lung neoplasm malignant
     Dosage: MONOTHERAPY
     Route: 065
     Dates: start: 201801, end: 201801
  5. CARBOPLATIN [Suspect]
     Active Substance: CARBOPLATIN
     Dosage: IN COMBINATION WITH VINORELBIN
     Route: 065
     Dates: start: 201801, end: 201801
  6. ALECENSA [Suspect]
     Active Substance: ALECTINIB HYDROCHLORIDE
     Indication: Lung neoplasm malignant
     Dosage: 600 MG BID 4CAPS 150 MG IN THE MORNING AND EVENING
     Route: 065
     Dates: start: 201909
  7. ALECENSA [Suspect]
     Active Substance: ALECTINIB HYDROCHLORIDE
     Dosage: 150 MILLIGRAM
     Route: 065
     Dates: start: 2020

REACTIONS (6)
  - Osteonecrosis [Not Recovered/Not Resolved]
  - Tonsillitis [Not Recovered/Not Resolved]
  - Gastritis [Unknown]
  - Abdominal pain upper [Unknown]
  - Nausea [Unknown]
  - Decreased appetite [Unknown]

NARRATIVE: CASE EVENT DATE: 20220725
